FAERS Safety Report 10947007 (Version 3)
Quarter: 2015Q2

REPORT INFORMATION
  Report Type: Spontaneous
  Country: FR (occurrence: FR)
  Receive Date: 20150323
  Receipt Date: 20150415
  Transmission Date: 20150821
  Serious: Yes (Hospitalization)
  Sender: FDA-Public Use
  Company Number: FR-GLAXOSMITHKLINE-FR2015GSK035929

PATIENT
  Age: 0 Year
  Sex: Male
  Weight: 10 kg

DRUGS (2)
  1. VENTOLINE AEROSOL [Concomitant]
     Active Substance: ALBUTEROL
     Indication: INFANTILE ASTHMA
     Dosage: UNK
     Route: 055
     Dates: start: 20140228
  2. FLIXOTIDE EVOHALER [Suspect]
     Active Substance: FLUTICASONE PROPIONATE
     Indication: INFANTILE ASTHMA
     Dosage: UNK
     Route: 055
     Dates: start: 20140228

REACTIONS (6)
  - Asthma [Not Recovered/Not Resolved]
  - Product quality issue [Unknown]
  - Bronchitis [Unknown]
  - Device issue [Unknown]
  - Off label use [Unknown]
  - Pneumonitis [Unknown]

NARRATIVE: CASE EVENT DATE: 2014
